FAERS Safety Report 16717176 (Version 3)
Quarter: 2019Q3

REPORT INFORMATION
  Report Type: Spontaneous
  Country: US (occurrence: US)
  Receive Date: 20190819
  Receipt Date: 20190917
  Transmission Date: 20191005
  Serious: No
  Sender: FDA-Public Use
  Company Number: US-PFIZER INC-2016410858

PATIENT
  Age: 71 Year
  Sex: Female

DRUGS (1)
  1. LYRICA [Suspect]
     Active Substance: PREGABALIN
     Indication: FIBROMYALGIA
     Dosage: 100 MG, UNK

REACTIONS (6)
  - Feeling abnormal [Unknown]
  - Vomiting [Unknown]
  - Panic attack [Unknown]
  - Diarrhoea [Unknown]
  - Malaise [Unknown]
  - Withdrawal syndrome [Unknown]
